FAERS Safety Report 7336269-3 (Version None)
Quarter: 2011Q1

REPORT INFORMATION
  Report Type: 
  Country: None (occurrence: None)
  Receive Date: 20110307
  Receipt Date: 20110223
  Transmission Date: 20110831
  Serious: Yes (Life-Threatening, Hospitalization, Other)
  Sender: FDA-Public Use
  Company Number: US-ACTELION-A-NJ2010-43263

PATIENT

DRUGS (18)
  1. SERTRALINE [Concomitant]
  2. SPIRIVA [Concomitant]
  3. DOCUSATE SODIUM W/SENNA [Concomitant]
  4. METOLAZONE [Concomitant]
  5. ASPIRIN [Concomitant]
  6. LOVASTATIN [Concomitant]
  7. LISINOPRIL [Concomitant]
  8. FERROUS SULFATE TAB [Concomitant]
  9. ALBUTEROL [Concomitant]
  10. SYMBICORT [Concomitant]
  11. SEROQUEL [Concomitant]
  12. VENTAVIS [Suspect]
     Indication: PULMONARY ARTERIAL HYPERTENSION
     Dosage: 6-9 TIMES/ DAY
     Route: 055
     Dates: start: 20081210, end: 20101227
  13. MULTI-VITAMIN [Concomitant]
  14. NOVOLOG [Concomitant]
  15. FRAGMIN [Concomitant]
  16. CARVEDILOL [Concomitant]
  17. TRACLEER [Suspect]
     Indication: PULMONARY ARTERIAL HYPERTENSION
     Dosage: UNK
     Route: 048
     Dates: start: 20081210
  18. LANTUS [Concomitant]

REACTIONS (10)
  - PULMONARY EMBOLISM [None]
  - VENTRICULAR FIBRILLATION [None]
  - DEEP VEIN THROMBOSIS [None]
  - URINARY TRACT INFECTION [None]
  - RENAL FAILURE ACUTE [None]
  - RESUSCITATION [None]
  - RESPIRATORY FAILURE [None]
  - CARDIAC ARREST [None]
  - BACTERAEMIA [None]
  - PNEUMONIA [None]
